FAERS Safety Report 15606996 (Version 1)
Quarter: 2018Q4

REPORT INFORMATION
  Report Type: Spontaneous
  Country: NL (occurrence: NL)
  Receive Date: 20181112
  Receipt Date: 20181112
  Transmission Date: 20190205
  Serious: Yes (Hospitalization)
  Sender: FDA-Public Use
  Company Number: NL-MYLANLABS-2018M1083317

PATIENT
  Age: 28 Year
  Sex: Female

DRUGS (4)
  1. MYCOPHENOLATE MOFETIL. [Suspect]
     Active Substance: MYCOPHENOLATE MOFETIL
     Indication: IMMUNOSUPPRESSION
     Route: 065
  2. ALEMTUZUMAB [Suspect]
     Active Substance: ALEMTUZUMAB
     Indication: IMMUNOSUPPRESSION
     Dosage: HIGH-DOSE
     Route: 065
  3. TACROLIMUS. [Suspect]
     Active Substance: TACROLIMUS
     Indication: IMMUNOSUPPRESSION
     Route: 065
  4. PREDNISOLONE. [Suspect]
     Active Substance: PREDNISOLONE
     Indication: IMMUNOSUPPRESSION
     Dosage: HIGH-DOSE INITIALLY; THEN TREATED IN AN UNSPECIFIED DOSE
     Route: 065

REACTIONS (7)
  - Herpes zoster disseminated [Recovering/Resolving]
  - Gastritis [Unknown]
  - Lipase increased [Unknown]
  - Lung consolidation [Unknown]
  - Post herpetic neuralgia [Not Recovered/Not Resolved]
  - Herpes zoster [Recovering/Resolving]
  - Nausea [Not Recovered/Not Resolved]
